FAERS Safety Report 4512071-2 (Version None)
Quarter: 2004Q4

REPORT INFORMATION
  Report Type: 
  Country: None (occurrence: None)
  Receive Date: 20041129
  Receipt Date: 20041005
  Transmission Date: 20050328
  Serious: Yes (Other)
  Sender: FDA-Public Use
  Company Number: DE-ROCHE-382481

PATIENT
  Sex: Male

DRUGS (1)
  1. LARIAM [Suspect]
     Indication: DRUG USE FOR UNKNOWN INDICATION
     Dosage: TAKEN WEEKLY.
     Route: 048
     Dates: start: 20030520, end: 20040330

REACTIONS (7)
  - ANXIETY [None]
  - BALANCE DISORDER [None]
  - HALLUCINATION [None]
  - HALLUCINATION, AUDITORY [None]
  - MALARIA [None]
  - MURDER [None]
  - PSYCHOTIC DISORDER [None]
